FAERS Safety Report 6477682-6 (Version None)
Quarter: 2009Q4

REPORT INFORMATION
  Report Type: 
  Country: None (occurrence: None)
  Receive Date: 20091207
  Receipt Date: 20090406
  Transmission Date: 20100525
  Serious: No
  Sender: FDA-Public Use
  Company Number: US-AMGEN-KDL330178

PATIENT
  Sex: Female
  Weight: 54.5 kg

DRUGS (6)
  1. ENBREL [Suspect]
     Indication: RHEUMATOID ARTHRITIS
     Route: 058
     Dates: start: 20071001
  2. METHOTREXATE [Concomitant]
     Route: 048
  3. LEFLUNOMIDE [Concomitant]
     Route: 048
  4. FOLIC ACID [Concomitant]
  5. SYNTHROID [Concomitant]
  6. METANX [Concomitant]

REACTIONS (3)
  - DIZZINESS [None]
  - FLUSHING [None]
  - SYNCOPE [None]
